FAERS Safety Report 23271282 (Version 1)
Quarter: 2023Q4

REPORT INFORMATION
  Report Type: Report from Study
  Country: JP (occurrence: JP)
  Receive Date: 20231207
  Receipt Date: 20231207
  Transmission Date: 20240109
  Serious: Yes (Death, Life-Threatening, Hospitalization, Other)
  Sender: FDA-Public Use
  Company Number: JP-002147023-NVSJ2022JP005352

PATIENT
  Age: 53 Year
  Sex: Male
  Weight: 70.5 kg

DRUGS (3)
  1. KYMRIAH [Suspect]
     Active Substance: TISAGENLECLEUCEL
     Indication: Diffuse large B-cell lymphoma
     Dosage: FULL DOSE ADMINISTERED
     Route: 041
     Dates: start: 20211117
  2. CYCLOPHOSPHAMIDE [Concomitant]
     Active Substance: CYCLOPHOSPHAMIDE
     Indication: Lymphodepletion
     Dosage: UNK
     Route: 065
     Dates: start: 20211113
  3. FLUDARABINE [Concomitant]
     Active Substance: FLUDARABINE PHOSPHATE
     Indication: Lymphodepletion
     Dosage: UNK
     Route: 065
     Dates: start: 20211113

REACTIONS (9)
  - Neutrophil count decreased [Fatal]
  - Thrombocytopenia [Fatal]
  - Pulmonary haemorrhage [Fatal]
  - Haemoptysis [Fatal]
  - Cytokine release syndrome [Recovered/Resolved]
  - Hypoxia [Unknown]
  - Diffuse large B-cell lymphoma [Unknown]
  - Malignant neoplasm progression [Unknown]
  - Myelosuppression [Unknown]

NARRATIVE: CASE EVENT DATE: 20211128
